FAERS Safety Report 4841520-5 (Version None)
Quarter: 2005Q4

REPORT INFORMATION
  Report Type: 
  Country: None (occurrence: None)
  Receive Date: 20051130
  Receipt Date: 20050815
  Transmission Date: 20060501
  Serious: No
  Sender: FDA-Public Use
  Company Number: US-GLAXOSMITHKLINE-A0570237A

PATIENT
  Age: 34 Year
  Sex: Female

DRUGS (3)
  1. WELLBUTRIN XL [Suspect]
     Indication: DEPRESSION
     Dosage: 300MG PER DAY
     Route: 048
     Dates: start: 20050723
  2. AMBIEN [Concomitant]
  3. PREVACID [Concomitant]

REACTIONS (4)
  - ANXIETY [None]
  - LETHARGY [None]
  - TREMOR [None]
  - WEIGHT DECREASED [None]
